FAERS Safety Report 15526466 (Version 2)
Quarter: 2018Q4

REPORT INFORMATION
  Report Type: Spontaneous
  Country: FR (occurrence: FR)
  Receive Date: 20181018
  Receipt Date: 20181022
  Transmission Date: 20190205
  Serious: Yes (Hospitalization, Other)
  Sender: FDA-Public Use
  Company Number: FR-PFIZER INC-2018420384

PATIENT
  Age: 61 Year
  Sex: Male

DRUGS (3)
  1. ZOPICLONE [Suspect]
     Active Substance: ZOPICLONE
     Dosage: 1 DF, UNK (1DF=14 T UNIT NOS)
     Route: 048
     Dates: start: 20180926, end: 20180926
  2. ALPRAZOLAM. [Suspect]
     Active Substance: ALPRAZOLAM
     Dosage: 11.25 MG, UNK
     Route: 048
     Dates: start: 20180926, end: 20180926
  3. ELIQUIS [Suspect]
     Active Substance: APIXABAN
     Dosage: 1 DF, UNK (1DF=60 T UNIT NOS)
     Route: 048
     Dates: start: 20180926, end: 20180926

REACTIONS (3)
  - Confusional state [Recovering/Resolving]
  - Poisoning deliberate [Unknown]
  - Somnolence [Recovering/Resolving]

NARRATIVE: CASE EVENT DATE: 20180926
